FAERS Safety Report 26132431 (Version 1)
Quarter: 2025Q4

REPORT INFORMATION
  Report Type: Spontaneous
  Country: US (occurrence: US)
  Receive Date: 20251208
  Receipt Date: 20251208
  Transmission Date: 20260119
  Serious: Yes (Other)
  Sender: BAUSCH AND LOMB
  Company Number: US-BAUSCH-BH-2025-021499

PATIENT
  Age: 64 Year
  Sex: Male

DRUGS (1)
  1. DEXAMETHASONE [Suspect]
     Active Substance: DEXAMETHASONE
     Indication: T-cell prolymphocytic leukaemia
     Route: 065

REACTIONS (2)
  - Acute kidney injury [Unknown]
  - Tumour lysis syndrome [Unknown]
